FAERS Safety Report 22272114 (Version 1)
Quarter: 2023Q2

REPORT INFORMATION
  Report Type: Spontaneous
  Country: US (occurrence: US)
  Receive Date: 20230502
  Receipt Date: 20230502
  Transmission Date: 20230721
  Serious: Yes (Other)
  Sender: FDA-Public Use
  Company Number: US-BRISTOL-MYERS SQUIBB COMPANY-2023-060590

PATIENT
  Age: 69 Year
  Sex: Female
  Weight: 40.8 kg

DRUGS (1)
  1. REVLIMID [Suspect]
     Active Substance: LENALIDOMIDE
     Indication: Plasma cell myeloma
     Dosage: PATIENT RECEIVED 5MG DAILY ON DAYS 1-7 AND 15-21 OF 28 DAY CYCLE
     Route: 048
     Dates: start: 20230307, end: 20230426

REACTIONS (2)
  - Tuberculosis [Unknown]
  - Off label use [Unknown]

NARRATIVE: CASE EVENT DATE: 20230426
